FAERS Safety Report 15226415 (Version 2)
Quarter: 2019Q3

REPORT INFORMATION
  Report Type: Spontaneous
  Country: US (occurrence: US)
  Receive Date: 20180801
  Receipt Date: 20190802
  Transmission Date: 20191004
  Serious: No
  Sender: FDA-Public Use
  Company Number: US-ENDO PHARMACEUTICALS INC-2018-039880

PATIENT
  Age: 62 Year
  Sex: Male
  Weight: 107.94 kg

DRUGS (4)
  1. TESTOPEL [Suspect]
     Active Substance: TESTOSTERONE
     Dosage: 600 MG (8 PELLETS), UNKNOWN
     Route: 058
     Dates: start: 20180619
  2. TESTOPEL [Suspect]
     Active Substance: TESTOSTERONE
     Indication: BLOOD TESTOSTERONE DECREASED
     Dosage: 750 MG (10 PELLETS), UNKNOWN
     Route: 058
     Dates: start: 201712, end: 2018
  3. ANDROGEL [Concomitant]
     Active Substance: TESTOSTERONE
     Indication: BLOOD TESTOSTERONE DECREASED
  4. FLONASE                            /00908302/ [Concomitant]
     Active Substance: MOMETASONE FUROATE
     Indication: SEASONAL ALLERGY

REACTIONS (9)
  - Lethargy [Unknown]
  - Weight increased [Unknown]
  - Product container issue [Unknown]
  - Product use complaint [Unknown]
  - Prescribed overdose [Unknown]
  - Fatigue [Unknown]
  - Blood testosterone decreased [Unknown]
  - Incorrect product administration duration [Unknown]
  - Weight decreased [Unknown]

NARRATIVE: CASE EVENT DATE: 201712
